FAERS Safety Report 9173825 (Version 5)
Quarter: 2013Q3

REPORT INFORMATION
  Report Type: Spontaneous
  Country: US (occurrence: None)
  Receive Date: 20130318
  Receipt Date: 20130722
  Transmission Date: 20140515
  Serious: Yes (Hospitalization)
  Sender: FDA-Public Use
  Company Number: ACO_34786_2013

PATIENT
  Age: 53 Year
  Sex: Male

DRUGS (1)
  1. AMPYRA [Suspect]
     Indication: GAIT DISTURBANCE
     Dates: start: 20121126

REACTIONS (5)
  - Knee arthroplasty [None]
  - Bone disorder [None]
  - Cartilage atrophy [None]
  - Gait disturbance [None]
  - Pain [None]
